FAERS Safety Report 8623267-2 (Version None)
Quarter: 2012Q3

REPORT INFORMATION
  Report Type: 
  Country: None (occurrence: None)
  Receive Date: 20120827
  Receipt Date: 20120816
  Transmission Date: 20120928
  Serious: Yes (Other)
  Sender: FDA-Public Use
  Company Number: AT-SANOFI-AVENTIS-2012SA059113

PATIENT
  Age: 69 Year
  Sex: Female

DRUGS (1)
  1. LOVENOX [Suspect]
     Route: 058
     Dates: start: 20120701, end: 20120701

REACTIONS (2)
  - VISUAL IMPAIRMENT [None]
  - VITREOUS DETACHMENT [None]
